FAERS Safety Report 5510681-7 (Version None)
Quarter: 2007Q4

REPORT INFORMATION
  Report Type: 
  Country: None (occurrence: None)
  Receive Date: 20071107
  Receipt Date: 20071026
  Transmission Date: 20080405
  Serious: Yes (Hospitalization)
  Sender: FDA-Public Use
  Company Number: CHPA2007US11351

PATIENT
  Age: 51 Year
  Sex: Female
  Weight: 41.7 kg

DRUGS (8)
  1. BENEFIBER CHEWABLE TABLET ORANGE (NCH) (GUAR GUM) CHEWABLE TABLET [Suspect]
     Indication: GLUCOSE TOLERANCE IMPAIRED
     Dosage: 1-3 TABS EACH DAY, ORAL; 3 DF, TID, ORAL
     Route: 048
     Dates: end: 20070721
  2. BENEFIBER CHEWABLE TABLET ORANGE (NCH) (GUAR GUM) CHEWABLE TABLET [Suspect]
     Indication: GLUCOSE TOLERANCE IMPAIRED
     Dosage: 1-3 TABS EACH DAY, ORAL; 3 DF, TID, ORAL
     Route: 048
     Dates: start: 20070401
  3. METFORMIN HCL [Concomitant]
  4. LIPITOR/NET (ATORVASTATIN CALCIUM) [Concomitant]
  5. CYMBALTA [Concomitant]
  6. ASPIRIN [Concomitant]
  7. VITAMIN D [Concomitant]
  8. DRUG THERAPY NOS (DRUG THERAPY NOS) [Concomitant]

REACTIONS (12)
  - ABDOMINAL DISTENSION [None]
  - ABDOMINAL PAIN [None]
  - ANOREXIA [None]
  - CHANGE OF BOWEL HABIT [None]
  - CONSTIPATION [None]
  - ILEUS PARALYTIC [None]
  - INTESTINAL OBSTRUCTION [None]
  - NAUSEA [None]
  - ORAL INTAKE REDUCED [None]
  - PROCEDURAL PAIN [None]
  - PROCEDURAL VOMITING [None]
  - VOMITING [None]
